FAERS Safety Report 4303686-5 (Version None)
Quarter: 2004Q1

REPORT INFORMATION
  Report Type: 
  Country: None (occurrence: None)
  Receive Date: 20040126
  Receipt Date: 20030930
  Transmission Date: 20041129
  Serious: No
  Sender: FDA-Public Use
  Company Number: USA030948675

PATIENT
  Age: 25 Year
  Sex: Female

DRUGS (4)
  1. STRATTERA [Suspect]
     Indication: DEPRESSION
     Dosage: 25 MG/DAY
     Dates: start: 20030801
  2. STRATTERA [Suspect]
     Indication: FATIGUE
     Dosage: 25 MG/DAY
     Dates: start: 20030801
  3. EFFEXOR [Concomitant]
  4. WELLBUTRIN [Concomitant]

REACTIONS (4)
  - CRYING [None]
  - DIZZINESS [None]
  - DYSPNOEA [None]
  - TREMOR [None]
